FAERS Safety Report 4952686-0 (Version None)
Quarter: 2006Q1

REPORT INFORMATION
  Report Type: 
  Country: None (occurrence: None)
  Receive Date: 20060324
  Receipt Date: 20060308
  Transmission Date: 20060701
  Serious: Yes (Hospitalization)
  Sender: FDA-Public Use
  Company Number: DE-NOVOPROD-251450

PATIENT
  Age: 75 Year
  Sex: Female

DRUGS (2)
  1. ACTIVELLE [Suspect]
     Indication: HORMONE REPLACEMENT THERAPY
     Dosage: UNK, QD
     Route: 048
     Dates: start: 20050501
  2. DIGIMERCK MINOR [Concomitant]
     Dosage: .07 MG, QD
     Route: 048

REACTIONS (1)
  - CEREBRAL INFARCTION [None]
